FAERS Safety Report 21462238 (Version 2)
Quarter: 2022Q4

REPORT INFORMATION
  Report Type: Spontaneous
  Country: JP (occurrence: JP)
  Receive Date: 20221016
  Receipt Date: 20221123
  Transmission Date: 20230113
  Serious: Yes (Hospitalization)
  Sender: FDA-Public Use
  Company Number: JP-Eisai-202209061_LEN-EC_P_1

PATIENT
  Age: 76 Year
  Sex: Female

DRUGS (3)
  1. LENVIMA [Suspect]
     Active Substance: LENVATINIB
     Indication: Endometrial cancer
     Dosage: DOSE AND FREQUENCY UNKNOWN
     Route: 048
     Dates: end: 202209
  2. LENVIMA [Suspect]
     Active Substance: LENVATINIB
     Dosage: DOSE REDUCED, DOSE AND FREQUENCY UNKNOWN
     Route: 048
     Dates: start: 20221003
  3. KEYTRUDA [Suspect]
     Active Substance: PEMBROLIZUMAB
     Indication: Endometrial cancer
     Route: 041

REACTIONS (6)
  - Pyrexia [Unknown]
  - Vomiting [Unknown]
  - Malaise [Recovered/Resolved]
  - Dysphonia [Unknown]
  - Rash [Unknown]
  - Renal impairment [Unknown]

NARRATIVE: CASE EVENT DATE: 20220901
